FAERS Safety Report 5824497-5 (Version None)
Quarter: 2008Q3

REPORT INFORMATION
  Report Type: 
  Country: None (occurrence: None)
  Receive Date: 20080722
  Receipt Date: 20080709
  Transmission Date: 20090109
  Serious: Yes (Disabling)
  Sender: FDA-Public Use
  Company Number: 1000000126

PATIENT
  Age: 40 Year
  Sex: Female
  Weight: 71 kg

DRUGS (4)
  1. ESCITALOPRAM [Suspect]
     Indication: DEPRESSION
     Dosage: 15 MG (15 MG,  1 IN1 D),ORAL
     Route: 048
     Dates: start: 20070901
  2. VALIUM [Concomitant]
  3. SUBUTEX [Concomitant]
  4. CANNABIS [Concomitant]

REACTIONS (1)
  - ALOPECIA AREATA [None]
